FAERS Safety Report 9912828 (Version 1)
Quarter: 2014Q1

REPORT INFORMATION
  Report Type: Spontaneous
  Country: FR (occurrence: None)
  Receive Date: 20140212
  Receipt Date: 20140212
  Transmission Date: 20141002
  Serious: Yes (Other)
  Sender: FDA-Public Use
  Company Number: NSR_01518_2014

PATIENT
  Age: 39 Year
  Sex: Male

DRUGS (3)
  1. BACLOFEN [Suspect]
     Indication: ALCOHOLISM
     Dosage: 20 MG, PER DAY
  2. RISPERIDONE [Suspect]
     Indication: BIPOLAR DISORDER
     Dosage: 1 MG, PER DAY DURING WEEK 1
  3. LITHIUM [Suspect]

REACTIONS (6)
  - Overdose [None]
  - Blood triglycerides increased [None]
  - Treatment noncompliance [None]
  - Blood cholesterol increased [None]
  - Hyponatraemia [None]
  - Weight increased [None]
